FAERS Safety Report 7972200-5 (Version None)
Quarter: 2011Q4

REPORT INFORMATION
  Report Type: 
  Country: None (occurrence: None)
  Receive Date: 20111212
  Receipt Date: 20111201
  Transmission Date: 20120403
  Serious: Yes (Hospitalization)
  Sender: FDA-Public Use
  Company Number: ES-ELI_LILLY_AND_COMPANY-ES201112000433

PATIENT
  Sex: Female
  Weight: 69 kg

DRUGS (7)
  1. SERC                               /00034201/ [Concomitant]
     Dosage: 16 MG, QD
     Route: 048
  2. PRANDIN [Concomitant]
     Indication: DIABETES MELLITUS
     Dosage: 1 MG, QD
     Route: 048
  3. EZETIMIBE [Concomitant]
     Indication: BLOOD CHOLESTEROL
     Dosage: 10 MG, QD
     Route: 048
  4. FORTEO [Suspect]
     Indication: OSTEOPOROSIS
     Dosage: 20 UG, QD
     Route: 058
     Dates: start: 20110215
  5. OMEPRAZOLE [Concomitant]
     Dosage: UNK, QD
     Route: 048
  6. DOXIUM [Concomitant]
     Dosage: 50 MG, QD
     Route: 048
  7. METFORMIN HYDROCHLORIDE [Concomitant]
     Indication: DIABETES MELLITUS
     Dosage: 100 MG, QD
     Route: 048

REACTIONS (2)
  - SENSATION OF PRESSURE [None]
  - PAIN [None]
